FAERS Safety Report 10013829 (Version 2)
Quarter: 2014Q1

REPORT INFORMATION
  Report Type: Spontaneous
  Country: US (occurrence: US)
  Receive Date: 20140316
  Receipt Date: 20140316
  Transmission Date: 20141002
  Serious: Yes (Other)
  Sender: FDA-Public Use
  Company Number: US-GE HEALTHCARE MEDICAL DIAGNOSTICS-OSCN-PR-0902S-0070

PATIENT
  Sex: Male

DRUGS (4)
  1. OMNISCAN [Suspect]
     Indication: PRODUCT USED FOR UNKNOWN INDICATION
     Route: 042
     Dates: start: 20041130, end: 20041130
  2. OMNISCAN [Suspect]
     Route: 042
     Dates: start: 20061117, end: 20061117
  3. GADOLINIUM (UNSPECIFIED) [Concomitant]
     Indication: PRODUCT USED FOR UNKNOWN INDICATION
     Route: 042
     Dates: start: 20040212, end: 20040212
  4. GADOLINIUM (UNSPECIFIED) [Concomitant]
     Route: 042
     Dates: start: 20060328, end: 20060328

REACTIONS (1)
  - Nephrogenic systemic fibrosis [Not Recovered/Not Resolved]
